FAERS Safety Report 6816253-6 (Version None)
Quarter: 2010Q2

REPORT INFORMATION
  Report Type: 
  Country: None (occurrence: None)
  Receive Date: 20100630
  Receipt Date: 20100624
  Transmission Date: 20101027
  Serious: Yes (Death, Hospitalization)
  Sender: FDA-Public Use
  Company Number: 2010US002515

PATIENT
  Age: 28 Year
  Sex: Male

DRUGS (5)
  1. MYCAMINE [Suspect]
     Indication: DRUG USE FOR UNKNOWN INDICATION
     Dosage: SEE IMAGE, IV NOS
     Route: 042
     Dates: start: 20100123, end: 20100123
  2. MYCAMINE [Suspect]
     Indication: DRUG USE FOR UNKNOWN INDICATION
     Dosage: SEE IMAGE, IV NOS
     Route: 042
     Dates: start: 20100124, end: 20100124
  3. MYCAMINE [Suspect]
     Indication: DRUG USE FOR UNKNOWN INDICATION
     Dosage: SEE IMAGE, IV NOS
     Route: 042
     Dates: start: 20100125, end: 20100125
  4. MYCAMINE [Suspect]
     Indication: DRUG USE FOR UNKNOWN INDICATION
     Dosage: SEE IMAGE, IV NOS
     Route: 042
     Dates: start: 20100125, end: 20100125
  5. MYCAMINE [Suspect]
     Indication: DRUG USE FOR UNKNOWN INDICATION
     Dosage: SEE IMAGE, IV NOS
     Route: 042
     Dates: start: 20100127, end: 20100127

REACTIONS (1)
  - DEATH [None]
